FAERS Safety Report 4933327-5 (Version None)
Quarter: 2006Q1

REPORT INFORMATION
  Report Type: 
  Country: None (occurrence: None)
  Receive Date: 20060301
  Receipt Date: 20060221
  Transmission Date: 20060701
  Serious: No
  Sender: FDA-Public Use
  Company Number: 06H-163-0305764-00

PATIENT
  Sex: Female

DRUGS (1)
  1. DEXTROSE 5% + 0.45% NACL INJECTION, USP, FLEX. CONTAINER (DEXTROSE + S [Suspect]

REACTIONS (4)
  - ACCIDENTAL EXPOSURE [None]
  - BLISTER [None]
  - BURNING SENSATION [None]
  - SKIN DISCOLOURATION [None]
